FAERS Safety Report 8572186-9 (Version None)
Quarter: 2012Q3

REPORT INFORMATION
  Report Type: 
  Country: None (occurrence: None)
  Receive Date: 20120806
  Receipt Date: 20120724
  Transmission Date: 20120928
  Serious: No
  Sender: FDA-Public Use
  Company Number: US-ASTRAZENECA-2012SE52260

PATIENT
  Age: 66 Year
  Sex: Female
  Weight: 63.5 kg

DRUGS (5)
  1. FISH OIL [Concomitant]
  2. CRESTOR [Suspect]
     Indication: CARDIOVASCULAR DISORDER
     Route: 048
     Dates: start: 20120723
  3. SYNTHROID [Concomitant]
     Indication: THYROID DISORDER
  4. VITAMIN TAB [Concomitant]
  5. ASPIRIN [Concomitant]

REACTIONS (2)
  - INSOMNIA [None]
  - DIARRHOEA [None]
